FAERS Safety Report 18899397 (Version 1)
Quarter: 2021Q1

REPORT INFORMATION
  Report Type: Spontaneous
  Country: BR (occurrence: BR)
  Receive Date: 20210216
  Receipt Date: 20210216
  Transmission Date: 20210420
  Serious: Yes (Other)
  Sender: FDA-Public Use
  Company Number: BR-BRISTOL-MYERS SQUIBB COMPANY-BMS-2021-012242

PATIENT
  Sex: Male

DRUGS (1)
  1. HYDREA [Suspect]
     Active Substance: HYDROXYUREA
     Indication: SICKLE CELL ANAEMIA
     Dosage: 500 MILLIGRAM
     Route: 065
     Dates: start: 2015

REACTIONS (2)
  - Sickle cell anaemia with crisis [Unknown]
  - Pain [Unknown]

NARRATIVE: CASE EVENT DATE: 2015
